FAERS Safety Report 26032425 (Version 1)
Quarter: 2025Q4

REPORT INFORMATION
  Report Type: Spontaneous
  Country: EU (occurrence: EU)
  Receive Date: 20251112
  Receipt Date: 20251112
  Transmission Date: 20260118
  Serious: Yes (Disabling, Other)
  Sender: HIKMA
  Company Number: EU-MLMSERVICE-20251028-PI688390-00255-5

PATIENT
  Age: 42 Year
  Sex: Male

DRUGS (8)
  1. CARBOPLATIN [Suspect]
     Active Substance: CARBOPLATIN
     Indication: Testicular seminoma (pure) stage II
     Dosage: AUC 8, ON THREE CONSECUTIVE DAYS; THREE CYCLES, ADMINISTERED EVERY FOUR WEEKS
     Route: 065
  2. CARBOPLATIN [Suspect]
     Active Substance: CARBOPLATIN
     Indication: Extragonadal primary seminoma (pure)
  3. CYCLOPHOSPHAMIDE [Suspect]
     Active Substance: CYCLOPHOSPHAMIDE
     Indication: Testicular seminoma (pure) stage II
     Dosage: TWO CYCLES OF CYCLOPHOSPHAMIDE 1300 MG/M2 ON DAY 1, 2 AND 3 EVERY TWO WEEKS
     Route: 065
  4. CYCLOPHOSPHAMIDE [Suspect]
     Active Substance: CYCLOPHOSPHAMIDE
     Indication: Extragonadal primary seminoma (pure)
  5. ETOPOSIDE [Suspect]
     Active Substance: ETOPOSIDE
     Indication: Testicular seminoma (pure) stage II
     Dosage: 400 MG/M2 ON THREE CONSECUTIVE DAYS; THREE CYCLES, ADMINISTERED EVERY FOUR WEEKS
     Route: 065
  6. ETOPOSIDE [Suspect]
     Active Substance: ETOPOSIDE
     Indication: Extragonadal primary seminoma (pure)
  7. PACLITAXEL [Suspect]
     Active Substance: PACLITAXEL
     Indication: Testicular seminoma (pure) stage II
     Dosage: TWO CYCLES OF PACLITAXEL 200 MG/M2 ON DAY 1, EVERY TWO WEEKS
     Route: 065
  8. PACLITAXEL [Suspect]
     Active Substance: PACLITAXEL
     Indication: Extragonadal primary seminoma (pure)

REACTIONS (2)
  - Neuropathy peripheral [Unknown]
  - Ototoxicity [Unknown]
